FAERS Safety Report 7398980-8 (Version None)
Quarter: 2011Q1

REPORT INFORMATION
  Report Type: 
  Country: None (occurrence: None)
  Receive Date: 20110328
  Receipt Date: 20110315
  Transmission Date: 20110831
  Serious: Yes (Other)
  Sender: FDA-Public Use
  Company Number: 008871

PATIENT
  Sex: Female
  Weight: 9.0719 kg

DRUGS (7)
  1. HUMALOG [Concomitant]
  2. HUMULIN R [Concomitant]
  3. INSULIN MIXTARD [Concomitant]
  4. METFORMIN [Concomitant]
  5. KEPPRA [Suspect]
     Dosage: (500 MG BID TRANSPLACENTAL)
     Route: 064
  6. GLYBURIDE [Concomitant]
  7. PRENATAL VITAMINS [Concomitant]

REACTIONS (2)
  - MACROCEPHALY [None]
  - MATERNAL DRUGS AFFECTING FOETUS [None]
